FAERS Safety Report 18233637 (Version 1)
Quarter: 2020Q3

REPORT INFORMATION
  Report Type: Report from Study
  Country: DE (occurrence: DE)
  Receive Date: 20200904
  Receipt Date: 20200904
  Transmission Date: 20201103
  Serious: Yes (Other)
  Sender: FDA-Public Use
  Company Number: DE-BAUSCH-BL-2020-025117

PATIENT
  Age: 78 Year
  Sex: Female
  Weight: 84 kg

DRUGS (28)
  1. DEXAMETHASONE. [Suspect]
     Active Substance: DEXAMETHASONE
     Route: 065
     Dates: start: 20160204, end: 20160225
  2. DEXAMETHASONE. [Suspect]
     Active Substance: DEXAMETHASONE
     Route: 065
     Dates: start: 20160107, end: 20160128
  3. DEXAMETHASONE. [Suspect]
     Active Substance: DEXAMETHASONE
     Route: 065
     Dates: start: 20160303, end: 20160324
  4. REVLIMID [Suspect]
     Active Substance: LENALIDOMIDE
     Route: 048
     Dates: start: 20161017, end: 20161113
  5. FUROSEMID?RATIOPHARM [Concomitant]
     Active Substance: FUROSEMIDE
     Indication: OEDEMA PERIPHERAL
     Route: 048
  6. FOLSAN [Concomitant]
     Active Substance: FOLIC ACID
     Indication: FATIGUE
     Dosage: 10 MILLIGRAM
     Route: 048
     Dates: start: 20161108
  7. DEXAMETHASONE. [Suspect]
     Active Substance: DEXAMETHASONE
     Route: 065
     Dates: start: 20160623, end: 20160714
  8. VITAMIN D3?HEVERT [Concomitant]
     Indication: OSTEOPOROTIC FRACTURE
     Dosage: 1000 IU (INTERNATIONAL UNIT)
     Route: 048
  9. MIRTAZAPIN BETA [Concomitant]
     Indication: INSOMNIA
     Dosage: 30 MILLIGRAM
     Route: 048
  10. ASA [Concomitant]
     Active Substance: ASPIRIN
     Indication: TRANSIENT ISCHAEMIC ATTACK
     Dosage: 100 MILLIGRAM
     Route: 048
     Dates: start: 1996
  11. DEXAMETHASONE. [Suspect]
     Active Substance: DEXAMETHASONE
     Route: 065
     Dates: start: 20160331, end: 20160519
  12. REVLIMID [Suspect]
     Active Substance: LENALIDOMIDE
     Dosage: 25 MILLIGRAM
     Route: 048
     Dates: start: 20160107, end: 20160127
  13. BISOPROLOL RATIOPHARM [Concomitant]
     Active Substance: BISOPROLOL
     Indication: ESSENTIAL HYPERTENSION
     Dosage: 5 MILLIGRAM
     Route: 048
  14. DEXAMETHASONE. [Suspect]
     Active Substance: DEXAMETHASONE
     Route: 065
     Dates: start: 20160728, end: 20160915
  15. REVLIMID [Suspect]
     Active Substance: LENALIDOMIDE
     Route: 048
     Dates: start: 20161114, end: 20170108
  16. REVLIMID [Suspect]
     Active Substance: LENALIDOMIDE
     Route: 048
     Dates: start: 20160725, end: 20160918
  17. DEXAMETHASONE. [Suspect]
     Active Substance: DEXAMETHASONE
     Indication: PRODUCT USED FOR UNKNOWN INDICATION
     Route: 065
     Dates: start: 20161020, end: 20161110
  18. DEXAMETHASONE. [Suspect]
     Active Substance: DEXAMETHASONE
     Route: 065
     Dates: start: 20161117, end: 20161201
  19. REVLIMID [Suspect]
     Active Substance: LENALIDOMIDE
     Dosage: 25 MILLIGRAM
     Route: 048
     Dates: start: 20160303, end: 20160323
  20. REVLIMID [Suspect]
     Active Substance: LENALIDOMIDE
     Route: 048
     Dates: start: 20160627, end: 20160724
  21. DEXAMETHASONE. [Suspect]
     Active Substance: DEXAMETHASONE
     Route: 065
     Dates: start: 20161208, end: 20170105
  22. DEXAMETHASONE. [Suspect]
     Active Substance: DEXAMETHASONE
     Route: 065
     Dates: start: 20160526, end: 20160616
  23. REVLIMID [Suspect]
     Active Substance: LENALIDOMIDE
     Indication: PLASMA CELL MYELOMA
     Route: 048
     Dates: start: 20160331, end: 20160518
  24. RAMIPRIL. [Concomitant]
     Active Substance: RAMIPRIL
     Indication: ESSENTIAL HYPERTENSION
     Dosage: 5.25 MILLIGRAM
     Route: 048
  25. REVLIMID [Suspect]
     Active Substance: LENALIDOMIDE
     Route: 048
     Dates: start: 20160526, end: 20160615
  26. REVLIMID [Suspect]
     Active Substance: LENALIDOMIDE
     Route: 048
     Dates: start: 20170109, end: 20170305
  27. ZOMETA [Concomitant]
     Active Substance: ZOLEDRONIC ACID
     Indication: PROPHYLAXIS
     Dosage: 0.1333 MILLIGRAM
     Route: 041
  28. TILIDIN [Concomitant]
     Active Substance: NALOXONE HYDROCHLORIDE\TILIDINE HYDROCHLORIDE
     Indication: HUMERUS FRACTURE
     Route: 048
     Dates: start: 20160705, end: 20161108

REACTIONS (3)
  - Dysphonia [Recovered/Resolved]
  - Constipation [Recovered/Resolved]
  - Pancytopenia [Not Recovered/Not Resolved]

NARRATIVE: CASE EVENT DATE: 20160107
